FAERS Safety Report 21192562 (Version 1)
Quarter: 2022Q3

REPORT INFORMATION
  Report Type: Spontaneous
  Country: JP (occurrence: JP)
  Receive Date: 20220809
  Receipt Date: 20220809
  Transmission Date: 20221026
  Serious: Yes (Hospitalization)
  Sender: FDA-Public Use
  Company Number: JP-NOVARTISPH-NVSJ2022JP095108

PATIENT

DRUGS (1)
  1. METFORMIN HYDROCHLORIDE\VILDAGLIPTIN [Suspect]
     Active Substance: METFORMIN HYDROCHLORIDE\VILDAGLIPTIN
     Indication: Type 2 diabetes mellitus
     Dosage: 1DF: METFORMIN HYDROCHLORIDE250MG, VILDAGLIPTIN50MG
     Route: 048

REACTIONS (3)
  - Physical deconditioning [Unknown]
  - Decreased appetite [Unknown]
  - Hypophagia [Unknown]

NARRATIVE: CASE EVENT DATE: 20220727
